FAERS Safety Report 15844734 (Version 3)
Quarter: 2019Q1

REPORT INFORMATION
  Report Type: Report from Study
  Country: US (occurrence: US)
  Receive Date: 20190118
  Receipt Date: 20190226
  Transmission Date: 20190417
  Serious: Yes (Hospitalization, Other)
  Sender: FDA-Public Use
  Company Number: US-GILEAD-2019-0385771

PATIENT
  Age: 80 Year
  Sex: Male

DRUGS (11)
  1. ELIQUIS [Concomitant]
     Active Substance: APIXABAN
  2. AMBRISENTAN [Suspect]
     Active Substance: AMBRISENTAN
     Indication: PULMONARY HYPERTENSION
     Dosage: 10 MG, QD
     Route: 065
     Dates: start: 20170303
  3. VALACYCLOVIR [Concomitant]
     Active Substance: VALACYCLOVIR HYDROCHLORIDE
  4. ATROVENT [Concomitant]
     Active Substance: IPRATROPIUM BROMIDE
  5. LASIX [Concomitant]
     Active Substance: FUROSEMIDE
  6. SYMBICORT [Concomitant]
     Active Substance: BUDESONIDE\FORMOTEROL FUMARATE DIHYDRATE
  7. SPIRIVA [Concomitant]
     Active Substance: TIOTROPIUM BROMIDE MONOHYDRATE
  8. PRED FORTE [Concomitant]
     Active Substance: PREDNISOLONE ACETATE
  9. ATORVASTATIN [Concomitant]
     Active Substance: ATORVASTATIN
  10. ADCIRCA [Suspect]
     Active Substance: TADALAFIL
     Indication: PULMONARY HYPERTENSION
     Dosage: 40 MG, QD
     Route: 065
     Dates: start: 20170318
  11. POTASSIUM [Concomitant]
     Active Substance: POTASSIUM

REACTIONS (4)
  - Dyspnoea [Recovered/Resolved]
  - Pericardial effusion [Recovered/Resolved]
  - Hypoxia [Unknown]
  - Hypotension [Recovered/Resolved]

NARRATIVE: CASE EVENT DATE: 201812
